FAERS Safety Report 5304932-1 (Version None)
Quarter: 2007Q2

REPORT INFORMATION
  Report Type: 
  Country: None (occurrence: None)
  Receive Date: 20070423
  Receipt Date: 20070416
  Transmission Date: 20071010
  Serious: Yes (Other)
  Sender: FDA-Public Use
  Company Number: US-SHR-US-2007-013224

PATIENT
  Age: 60 Year
  Sex: Female

DRUGS (7)
  1. MAGNEVIST [Suspect]
     Dosage: 50 ML, 1 DOSE
     Route: 042
     Dates: start: 20050818, end: 20050818
  2. MAGNEVIST [Suspect]
     Dosage: 20 ML, 1 DOSE
     Route: 042
     Dates: start: 20060101, end: 20060101
  3. MAGNEVIST [Suspect]
     Dosage: 20 ML, 1 DOSE
     Route: 042
     Dates: start: 20060102, end: 20060102
  4. MAGNEVIST [Suspect]
     Dosage: 20 ML, 1 DOSE
     Route: 042
     Dates: start: 20060416, end: 20060416
  5. MAGNEVIST [Suspect]
     Dosage: 20 ML, 1 DOSE
     Route: 042
     Dates: start: 20060909, end: 20060909
  6. MAGNEVIST [Suspect]
     Dosage: 40 ML, 1 DOSE
     Route: 042
     Dates: start: 20060919, end: 20060919
  7. MAGNEVIST [Suspect]
     Dosage: 20 ML, 1 DOSE
     Route: 011
     Dates: start: 20061021, end: 20061021

REACTIONS (2)
  - NEPHROGENIC FIBROSING DERMOPATHY [None]
  - SERUM FERRITIN INCREASED [None]
